FAERS Safety Report 7483346-2 (Version None)
Quarter: 2011Q2

REPORT INFORMATION
  Report Type: 
  Country: None (occurrence: None)
  Receive Date: 20110517
  Receipt Date: 20110408
  Transmission Date: 20111010
  Serious: Yes (Other)
  Sender: FDA-Public Use
  Company Number: US-BAYER-201021413NA

PATIENT
  Age: 22 Year
  Sex: Female
  Weight: 74.83 kg

DRUGS (7)
  1. SEREVENT [Concomitant]
  2. YAZ [Suspect]
     Indication: CONTRACEPTION
     Dosage: UNK
     Route: 048
     Dates: start: 20070101, end: 20080101
  3. YASMIN [Suspect]
     Indication: CONTRACEPTION
     Dosage: UNK
     Dates: start: 20040101, end: 20060101
  4. ATENOLOL [Concomitant]
     Indication: MIGRAINE
  5. NEURONTIN [Concomitant]
     Indication: BACK PAIN
  6. PROPRANOLOL [Concomitant]
  7. SUDAFED 12 HOUR [Concomitant]

REACTIONS (6)
  - NAUSEA [None]
  - GALLBLADDER DISORDER [None]
  - ABDOMINAL PAIN [None]
  - VOMITING [None]
  - GALLBLADDER CHOLESTEROLOSIS [None]
  - CHOLELITHIASIS [None]
